FAERS Safety Report 7273268-4 (Version None)
Quarter: 2011Q1

REPORT INFORMATION
  Report Type: 
  Country: None (occurrence: None)
  Receive Date: 20110128
  Receipt Date: 20110112
  Transmission Date: 20110831
  Serious: Yes (Hospitalization)
  Sender: FDA-Public Use
  Company Number: THQ2011A00194

PATIENT
  Age: 36 Year
  Sex: Male

DRUGS (8)
  1. PREDNISOLONE [Suspect]
     Dosage: PER ORAL
     Route: 048
  2. AMOXICILLIN TRIHYDRATE [Concomitant]
  3. AMOXICILLIN TRIHYDRATE [Suspect]
     Dosage: PER ORAL
     Route: 048
  4. LANSOPRAZOLE [Suspect]
     Dosage: 1 DF (1 DF, 1 IN 1 D), PER ORAL
     Route: 048
     Dates: start: 20101001, end: 20101107
  5. SEROPLEX FILM-COATED TABLETS (ESCITALOPRAM) [Suspect]
     Dosage: 10 MG 910 MG, 1 IN 1 D), PER ORAL
     Route: 048
     Dates: start: 20100901, end: 20101107
  6. PREDNISOLONE [Concomitant]
  7. LEVOTHYROXINE SODIUM [Concomitant]
  8. LEVOTHYROXINE SODIUM [Suspect]
     Dosage: 12.5 MCG (12.5 MCG, 1 IN 1 D), PER ORAL
     Route: 048

REACTIONS (8)
  - GINGIVAL BLEEDING [None]
  - EPISTAXIS [None]
  - OROPHARYNGEAL BLISTERING [None]
  - HAEMOGLOBIN DECREASED [None]
  - IDIOPATHIC THROMBOCYTOPENIC PURPURA [None]
  - HAEMATOMA [None]
  - HAEMOPTYSIS [None]
  - IRON DEFICIENCY [None]
